FAERS Safety Report 13378157 (Version 3)
Quarter: 2017Q3

REPORT INFORMATION
  Report Type: Spontaneous
  Country: KR (occurrence: KR)
  Receive Date: 20170328
  Receipt Date: 20170717
  Transmission Date: 20171127
  Serious: Yes (Other)
  Sender: FDA-Public Use
  Company Number: KR-009507513-1703KOR012214

PATIENT
  Age: 62 Year
  Sex: Female
  Weight: 58 kg

DRUGS (38)
  1. ENDOXAN [Concomitant]
     Active Substance: CYCLOPHOSPHAMIDE
     Dosage: 760 MG, ONCE
     Route: 042
     Dates: start: 20161205, end: 20161205
  2. DEXAMETHASONE SODIUM PHOSPHATE. [Concomitant]
     Active Substance: DEXAMETHASONE SODIUM PHOSPHATE
     Dosage: 12 MG, ONCE
     Route: 042
     Dates: start: 20161205, end: 20161205
  3. ALOXI [Concomitant]
     Active Substance: PALONOSETRON HYDROCHLORIDE
     Dosage: 5 MG, ONCE
     Route: 042
     Dates: start: 20161005, end: 20161005
  4. STOGAR [Concomitant]
     Active Substance: LAFUTIDINE
     Indication: PROPHYLAXIS
     Dosage: 1 DF, UNK
     Route: 048
     Dates: start: 20160830, end: 20160901
  5. DOXORUBICIN [Concomitant]
     Active Substance: DOXORUBICIN
     Dosage: 76 MG, ONCE
     Route: 042
     Dates: start: 20161005, end: 20161005
  6. DOXORUBICIN [Concomitant]
     Active Substance: DOXORUBICIN
     Dosage: 76 MG, ONCE
     Route: 042
     Dates: start: 20161205, end: 20161205
  7. LAMINA G [Concomitant]
     Active Substance: SODIUM ALGINATE
     Indication: PROPHYLAXIS
     Dosage: 1 DF, PRN
     Route: 048
     Dates: start: 20161005, end: 20161219
  8. DOXORUBICIN [Concomitant]
     Active Substance: DOXORUBICIN
     Indication: BREAST CANCER
     Dosage: 76 MG, ONCE
     Route: 042
     Dates: start: 20160912, end: 20160912
  9. DEXAMETHASONE. [Concomitant]
     Active Substance: DEXAMETHASONE
     Dosage: 8 MG, UNK
     Route: 048
     Dates: start: 20161006, end: 20161008
  10. BESZYME [Concomitant]
     Indication: PROPHYLAXIS
     Dosage: 1 DF, UNK
     Route: 048
     Dates: start: 20161212, end: 20161217
  11. METOCLOPRAMIDE. [Concomitant]
     Active Substance: METOCLOPRAMIDE
     Indication: PROPHYLAXIS
     Dosage: 10 MG, UNK
     Route: 048
     Dates: start: 20161005, end: 20161211
  12. DOXORUBICIN [Concomitant]
     Active Substance: DOXORUBICIN
     Dosage: 76 MG, ONCE
     Route: 042
     Dates: start: 20161102, end: 20161102
  13. ENDOXAN [Concomitant]
     Active Substance: CYCLOPHOSPHAMIDE
     Dosage: 760 MG, ONCE
     Route: 042
     Dates: start: 20161102, end: 20161102
  14. AMOXICILLIN (+) CLAVULANATE POTASSIUM [Concomitant]
     Active Substance: AMOXICILLIN\CLAVULANATE POTASSIUM
     Indication: PROPHYLAXIS
     Dosage: 1 DF, UNK
     Route: 048
     Dates: start: 20161026, end: 20161102
  15. EMEND (FOSAPREPITANT DIMEGLUMINE) [Suspect]
     Active Substance: FOSAPREPITANT DIMEGLUMINE
     Dosage: 150 MG, ONCE
     Route: 042
     Dates: start: 20161102, end: 20161102
  16. DEXAMETHASONE SODIUM PHOSPHATE. [Concomitant]
     Active Substance: DEXAMETHASONE SODIUM PHOSPHATE
     Indication: PREMEDICATION
     Dosage: 12 MG, ONCE
     Route: 042
     Dates: start: 20160912, end: 20160912
  17. DEXAMETHASONE SODIUM PHOSPHATE. [Concomitant]
     Active Substance: DEXAMETHASONE SODIUM PHOSPHATE
     Dosage: 12 MG, ONCE
     Route: 042
     Dates: start: 20161005, end: 20161005
  18. CAROL F [Concomitant]
     Indication: PAIN
     Dosage: 1 DF, UNK
     Route: 048
     Dates: start: 20161127, end: 20161207
  19. GASMOTIN [Concomitant]
     Active Substance: MOSAPRIDE CITRATE
     Indication: PROPHYLAXIS OF NAUSEA AND VOMITING
     Dosage: 1 DF, UNK
     Route: 048
     Dates: start: 20161212, end: 20161217
  20. PARAMACET [Concomitant]
     Active Substance: ACETAMINOPHEN\TRAMADOL
     Indication: PAIN
     Dosage: 1 DF, UNK
     Route: 048
     Dates: start: 20160830, end: 20161226
  21. STILEN (MUGWORT) [Concomitant]
     Indication: PROPHYLAXIS
     Dosage: 1 DF, UNK
     Route: 048
     Dates: start: 20161127, end: 20161130
  22. HEXAMEDINE [Concomitant]
     Indication: PROPHYLAXIS
     Dosage: 1 DF, UNK
     Dates: start: 20161005, end: 201612
  23. ANYCOUGH [Concomitant]
     Active Substance: THEOBROMINE
     Indication: UPPER RESPIRATORY TRACT INFECTION
     Dosage: 1 CAPSULE, BID
     Route: 048
     Dates: start: 20161218, end: 20161221
  24. DEXAMETHASONE SODIUM PHOSPHATE. [Concomitant]
     Active Substance: DEXAMETHASONE SODIUM PHOSPHATE
     Dosage: 12 MG, ONCE
     Route: 042
     Dates: start: 20161102, end: 20161102
  25. DEXAMETHASONE. [Concomitant]
     Active Substance: DEXAMETHASONE
     Indication: PROPHYLAXIS
     Dosage: 8 MG, UNK
     Route: 048
     Dates: start: 20160913, end: 20160915
  26. DEXAMETHASONE. [Concomitant]
     Active Substance: DEXAMETHASONE
     Dosage: 8 MG, UNK
     Route: 048
     Dates: start: 20161206, end: 20161208
  27. MUCOPECT [Concomitant]
     Indication: UPPER RESPIRATORY TRACT INFECTION
     Dosage: 1 TABLET, TID
     Route: 048
     Dates: start: 20161218, end: 20161221
  28. EMEND (FOSAPREPITANT DIMEGLUMINE) [Suspect]
     Active Substance: FOSAPREPITANT DIMEGLUMINE
     Dosage: 150 MG, ONCE
     Route: 042
     Dates: start: 20161005, end: 20161005
  29. EMEND (FOSAPREPITANT DIMEGLUMINE) [Suspect]
     Active Substance: FOSAPREPITANT DIMEGLUMINE
     Dosage: 150 MG, ONCE
     Route: 042
     Dates: start: 20161205, end: 20161205
  30. ENDOXAN [Concomitant]
     Active Substance: CYCLOPHOSPHAMIDE
     Dosage: 760 MG, ONCE
     Route: 042
     Dates: start: 20161005, end: 20161005
  31. ALOXI [Concomitant]
     Active Substance: PALONOSETRON HYDROCHLORIDE
     Dosage: 5 MG, ONCE
     Route: 042
     Dates: start: 20161102, end: 20161102
  32. GASTER [Concomitant]
     Active Substance: FAMOTIDINE
     Indication: PROPHYLAXIS
     Dosage: 1 DF, UNK
     Route: 048
     Dates: start: 20161218, end: 20161221
  33. EMEND (FOSAPREPITANT DIMEGLUMINE) [Suspect]
     Active Substance: FOSAPREPITANT DIMEGLUMINE
     Indication: PROPHYLAXIS OF NAUSEA AND VOMITING
     Dosage: 150 MG, ONCE
     Route: 042
     Dates: start: 20160912, end: 20160912
  34. ENDOXAN [Concomitant]
     Active Substance: CYCLOPHOSPHAMIDE
     Indication: BREAST CANCER
     Dosage: 760 MG, ONCE
     Route: 042
     Dates: start: 20160912, end: 20160912
  35. DEXAMETHASONE. [Concomitant]
     Active Substance: DEXAMETHASONE
     Dosage: 8 MG, UNK
     Route: 048
     Dates: start: 20161103, end: 20161105
  36. ALOXI [Concomitant]
     Active Substance: PALONOSETRON HYDROCHLORIDE
     Indication: PREMEDICATION
     Dosage: 5 MG, ONCE
     Route: 042
     Dates: start: 20160912, end: 20160912
  37. ALOXI [Concomitant]
     Active Substance: PALONOSETRON HYDROCHLORIDE
     Dosage: 5 MG, ONCE
     Route: 042
     Dates: start: 20161205, end: 20161205
  38. SOLETON [Concomitant]
     Active Substance: ZALTOPROFEN
     Indication: PROPHYLAXIS AGAINST DIARRHOEA
     Dosage: 1 DF, UNK
     Route: 048
     Dates: start: 20161218, end: 20161221

REACTIONS (5)
  - Injection site bruising [Recovered/Resolved]
  - Peripheral swelling [Recovered/Resolved]
  - Upper respiratory tract infection [Recovered/Resolved]
  - Diarrhoea [Recovered/Resolved]
  - Pharyngotonsillitis [Recovered/Resolved]

NARRATIVE: CASE EVENT DATE: 20160912
